FAERS Safety Report 5808275-9 (Version None)
Quarter: 2008Q3

REPORT INFORMATION
  Report Type: 
  Country: None (occurrence: None)
  Receive Date: 20080709
  Receipt Date: 20080701
  Transmission Date: 20090109
  Serious: Yes (Hospitalization)
  Sender: FDA-Public Use
  Company Number: 2008SP013073

PATIENT
  Age: 80 Year
  Sex: Male

DRUGS (9)
  1. TEMOZOLOMIDE [Suspect]
     Indication: SARCOMA
     Dosage: 370 MG;QD;PO
     Route: 048
     Dates: start: 20080609, end: 20080613
  2. AZACITIDINE [Suspect]
     Indication: SARCOMA
     Dosage: 47 MG;QD;SC
     Route: 058
     Dates: start: 20080616, end: 20080620
  3. TOPROL-XL [Concomitant]
  4. CADUET [Concomitant]
  5. ASPIRIN [Concomitant]
  6. TIMOLOL MALEATE [Concomitant]
  7. COUMADIN [Concomitant]
  8. NEXIUM [Concomitant]
  9. LAMICTAL [Concomitant]

REACTIONS (1)
  - CHEST PAIN [None]
